FAERS Safety Report 6932364-9 (Version None)
Quarter: 2010Q3

REPORT INFORMATION
  Report Type: 
  Country: None (occurrence: None)
  Receive Date: 20100813
  Receipt Date: 20100601
  Transmission Date: 20110219
  Serious: No
  Sender: FDA-Public Use
  Company Number: 1000014227

PATIENT
  Age: 50 Year
  Sex: Female

DRUGS (6)
  1. SAVELLA [Suspect]
     Indication: PAIN
     Dosage: 12.5 MG (12.5 MG,1 IN 1 D), ORAL
     Route: 048
     Dates: start: 20100526, end: 20100527
  2. VICODIN [Concomitant]
  3. AVALIDE [Concomitant]
  4. AMBIEN [Concomitant]
  5. HIGH [Concomitant]
  6. BIOIDENTICAL [Concomitant]

REACTIONS (3)
  - ANXIETY [None]
  - HYPERHIDROSIS [None]
  - MOROSE [None]
